FAERS Safety Report 4710626-3 (Version None)
Quarter: 2005Q3

REPORT INFORMATION
  Report Type: 
  Country: None (occurrence: None)
  Receive Date: 20050711
  Receipt Date: 20050630
  Transmission Date: 20060218
  Serious: Yes (Other)
  Sender: FDA-Public Use
  Company Number: PHBS2005JP09459

PATIENT

DRUGS (3)
  1. VOLTAREN [Suspect]
     Route: 054
  2. LOXONIN [Suspect]
     Route: 048
  3. RADIATION THERAPY [Concomitant]

REACTIONS (2)
  - ECZEMA [None]
  - PHARYNGEAL OEDEMA [None]
